FAERS Safety Report 9249902 (Version 1)
Quarter: 2013Q2

REPORT INFORMATION
  Report Type: Spontaneous
  Country: US (occurrence: US)
  Receive Date: 20130423
  Receipt Date: 20130423
  Transmission Date: 20140414
  Serious: Yes (Other)
  Sender: FDA-Public Use
  Company Number: US-ROXANE LABORATORIES, INC.-2013-RO-00522RO

PATIENT
  Age: 40 Year
  Sex: Female

DRUGS (5)
  1. LITHIUM CARBONATE [Suspect]
     Indication: BIPOLAR DISORDER
  2. ZOLPIDEM [Suspect]
     Dosage: 10 MG
     Route: 048
  3. ARIPIPRAZOLE [Suspect]
     Dosage: 15 MG
     Route: 048
  4. PAROXETINE [Suspect]
     Dosage: 10 MG
     Route: 048
  5. PERPHENAZINE [Suspect]
     Dosage: 32 MG
     Route: 048

REACTIONS (2)
  - Nephrogenic diabetes insipidus [Recovered/Resolved]
  - Delirium [Recovered/Resolved]
